FAERS Safety Report 16729158 (Version 4)
Quarter: 2019Q4

REPORT INFORMATION
  Report Type: Report from Study
  Country: RU (occurrence: RU)
  Receive Date: 20190822
  Receipt Date: 20191118
  Transmission Date: 20200122
  Serious: Yes (Other)
  Sender: FDA-Public Use
  Company Number: RU-EISAI MEDICAL RESEARCH-EC-2019-060850

PATIENT
  Age: 57 Year
  Sex: Male
  Weight: 84.1 kg

DRUGS (18)
  1. LINAGLIPTIN [Concomitant]
     Active Substance: LINAGLIPTIN
  2. BENZYDAMINE [Concomitant]
     Active Substance: BENZYDAMINE
  3. TENOFOVIR [Concomitant]
     Active Substance: TENOFOVIR
  4. ENALAPRIL [Concomitant]
     Active Substance: ENALAPRIL
  5. LEVOTHYROXINE SODIUM. [Concomitant]
     Active Substance: LEVOTHYROXINE SODIUM
  6. AMLODIPINE [Concomitant]
     Active Substance: AMLODIPINE BESYLATE
  7. PEMBROLIZUMAB. [Suspect]
     Active Substance: PEMBROLIZUMAB
     Indication: HEPATOCELLULAR CARCINOMA
     Route: 041
     Dates: start: 20190211, end: 20190304
  8. LENVATINIB [Suspect]
     Active Substance: LENVATINIB
     Indication: HEPATOCELLULAR CARCINOMA
     Route: 048
     Dates: start: 20190211
  9. PEMBROLIZUMAB. [Suspect]
     Active Substance: PEMBROLIZUMAB
     Route: 041
     Dates: start: 20190909
  10. FLUOCINOLONE ACETONIDE. [Concomitant]
     Active Substance: FLUOCINOLONE ACETONIDE
  11. PEMBROLIZUMAB. [Suspect]
     Active Substance: PEMBROLIZUMAB
     Route: 041
     Dates: start: 20190415, end: 20190729
  12. GLICLAZIDE [Concomitant]
     Active Substance: GLICLAZIDE
  13. ESOMEPRAZOLE. [Concomitant]
     Active Substance: ESOMEPRAZOLE MAGNESIUM
  14. ADEMETIONINE [Concomitant]
     Active Substance: ADEMETIONINE
  15. INDAPAMIDE. [Concomitant]
     Active Substance: INDAPAMIDE
  16. METFORMIN [Concomitant]
     Active Substance: METFORMIN HYDROCHLORIDE
  17. SPIRONOLACTONE. [Concomitant]
     Active Substance: SPIRONOLACTONE
  18. UREA ACID [Concomitant]

REACTIONS (1)
  - Blood bilirubin increased [Recovered/Resolved]

NARRATIVE: CASE EVENT DATE: 20190816
